FAERS Safety Report 4741117-1 (Version None)
Quarter: 2005Q3

REPORT INFORMATION
  Report Type: 
  Country: None (occurrence: None)
  Receive Date: 20050808
  Receipt Date: 20050720
  Transmission Date: 20060218
  Serious: No
  Sender: FDA-Public Use
  Company Number: USA0506101654

PATIENT
  Age: 15 Year
  Sex: Male
  Weight: 93 kg

DRUGS (3)
  1. STRATTERA [Suspect]
     Dosage: 40 MG/BID DAY
  2. METADATE (METHYLPHENIDATE HYDROCHLORIDE) [Concomitant]
  3. ZANTAC [Concomitant]

REACTIONS (6)
  - ABDOMINAL PAIN [None]
  - ANOREXIA [None]
  - BLOOD ALKALINE PHOSPHATASE INCREASED [None]
  - CONSTIPATION [None]
  - HYPERBILIRUBINAEMIA [None]
  - RECTAL HAEMORRHAGE [None]
